FAERS Safety Report 24914464 (Version 2)
Quarter: 2025Q1

REPORT INFORMATION
  Report Type: Spontaneous
  Country: US (occurrence: US)
  Receive Date: 20250203
  Receipt Date: 20250207
  Transmission Date: 20250409
  Serious: No
  Sender: ABBVIE
  Company Number: US-ABBVIE-6107135

PATIENT
  Sex: Male

DRUGS (2)
  1. HUMIRA [Suspect]
     Active Substance: ADALIMUMAB
     Indication: Maternal exposure timing unspecified
     Route: 063
  2. HUMIRA [Suspect]
     Active Substance: ADALIMUMAB
     Route: 064

REACTIONS (2)
  - Foetal exposure during pregnancy [Unknown]
  - Exposure via breast milk [Unknown]
